FAERS Safety Report 7817945-2 (Version None)
Quarter: 2011Q4

REPORT INFORMATION
  Report Type: 
  Country: None (occurrence: None)
  Receive Date: 20111017
  Receipt Date: 20111007
  Transmission Date: 20120403
  Serious: Yes (Hospitalization)
  Sender: FDA-Public Use
  Company Number: DK-GLAXOSMITHKLINE-B0681271A

PATIENT
  Sex: Male

DRUGS (3)
  1. MADOPAR DEPOT [Concomitant]
     Route: 048
     Dates: start: 19991210
  2. REQUIP CR [Suspect]
     Indication: PARKINSON'S DISEASE
     Route: 048
     Dates: start: 20090528
  3. STALEVO 100 [Concomitant]
     Route: 048
     Dates: start: 20040429

REACTIONS (2)
  - PATHOLOGICAL GAMBLING [None]
  - PULMONARY EMBOLISM [None]
